FAERS Safety Report 12120681 (Version 1)
Quarter: 2016Q1

REPORT INFORMATION
  Report Type: Spontaneous
  Country: AR (occurrence: AR)
  Receive Date: 20160226
  Receipt Date: 20160226
  Transmission Date: 20160526
  Serious: Yes (Death, Other)
  Sender: FDA-Public Use
  Company Number: AR-ROXANE LABORATORIES, INC.-2016-RO-00360RO

PATIENT
  Age: 39 Year
  Sex: Female

DRUGS (5)
  1. RITONAVIR. [Suspect]
     Active Substance: RITONAVIR
     Indication: HIV INFECTION
     Dosage: 100 MG
     Route: 065
  2. ERGOTAMINE [Suspect]
     Active Substance: CAFFEINE\ERGOTAMINE\ERGOTAMINE TARTRATE
     Indication: HEADACHE
     Dosage: 3000 MG
     Route: 065
  3. ATAZANAVIR [Concomitant]
     Active Substance: ATAZANAVIR
     Indication: HIV INFECTION
     Dosage: 300 MG
     Route: 065
  4. LAMIVUDINE. [Concomitant]
     Active Substance: LAMIVUDINE
     Indication: HIV INFECTION
     Dosage: 360 MG
     Route: 065
  5. TENOFOVIR [Concomitant]
     Active Substance: TENOFOVIR
     Indication: HIV INFECTION
     Dosage: 300 MG
     Route: 065

REACTIONS (5)
  - Acute respiratory failure [Unknown]
  - Metabolic acidosis [Unknown]
  - Ergot poisoning [Fatal]
  - Pneumonia klebsiella [Unknown]
  - Septic shock [Fatal]
